FAERS Safety Report 14790500 (Version 1)
Quarter: 2018Q2

REPORT INFORMATION
  Report Type: Spontaneous
  Country: US (occurrence: US)
  Receive Date: 20180413
  Receipt Date: 20180413
  Transmission Date: 20180711
  Serious: Yes (Disabling)
  Sender: FDA-Public Use
  Company Number: None

PATIENT
  Age: 71 Year
  Sex: Female
  Weight: 55.8 kg

DRUGS (6)
  1. SYNTHROID [Suspect]
     Active Substance: LEVOTHYROXINE SODIUM
     Indication: HYPOTHYROIDISM
     Dosage: ?          QUANTITY:90 TABLET(S);?
     Route: 048
  2. HUMIRA [Concomitant]
     Active Substance: ADALIMUMAB
  3. VITAMIN D [Concomitant]
     Active Substance: CHOLECALCIFEROL
  4. VITAMIN B GROUP COMPLEX [Concomitant]
  5. CITRACAL [Concomitant]
     Active Substance: CALCIUM CITRATE
  6. POTASSIUM SUPPLEMENT [Concomitant]
     Active Substance: POTASSIUM

REACTIONS (2)
  - Insomnia [None]
  - Tinnitus [None]

NARRATIVE: CASE EVENT DATE: 20180409
